FAERS Safety Report 5297616-X (Version None)
Quarter: 2007Q2

REPORT INFORMATION
  Report Type: 
  Country: None (occurrence: None)
  Receive Date: 20070412
  Receipt Date: 20070412
  Transmission Date: 20071010
  Serious: Yes (Life-Threatening)
  Sender: FDA-Public Use
  Company Number: None

PATIENT
  Sex: Female
  Weight: 73.4827 kg

DRUGS (1)
  1. LAMICTAL [Suspect]
     Dosage: 100MG QD PO
     Route: 048
     Dates: start: 20070226, end: 20070410

REACTIONS (2)
  - MOUTH ULCERATION [None]
  - RASH [None]
